FAERS Safety Report 8603105-4 (Version None)
Quarter: 2012Q3

REPORT INFORMATION
  Report Type: 
  Country: None (occurrence: None)
  Receive Date: 20120817
  Receipt Date: 20111108
  Transmission Date: 20120928
  Serious: No
  Sender: FDA-Public Use
  Company Number: US-GLAXOSMITHKLINE-A0952292A

PATIENT
  Age: 30 Year
  Sex: Female

DRUGS (1)
  1. TAGAMET HB 200 [Suspect]
     Indication: SKIN PAPILLOMA
     Dates: start: 20111106

REACTIONS (2)
  - OFF LABEL USE [None]
  - DIARRHOEA [None]
